FAERS Safety Report 7153219-3 (Version None)
Quarter: 2010Q4

REPORT INFORMATION
  Report Type: 
  Country: None (occurrence: None)
  Receive Date: 20101213
  Receipt Date: 20101201
  Transmission Date: 20110411
  Serious: Yes (Hospitalization)
  Sender: FDA-Public Use
  Company Number: JP-SANOFI-AVENTIS-2010SA068756

PATIENT
  Age: 73 Year
  Sex: Male

DRUGS (15)
  1. RIFADIN [Suspect]
     Indication: PLEURAL EFFUSION
     Dates: start: 20100520, end: 20100909
  2. ISCOTIN [Suspect]
     Indication: PLEURAL EFFUSION
     Dates: start: 20100520, end: 20100909
  3. PYRAMIDE [Concomitant]
     Indication: PLEURAL EFFUSION
     Dates: start: 20100520, end: 20100708
  4. UROLOGICALS [Concomitant]
  5. ESANBUTOL [Concomitant]
     Indication: PLEURAL EFFUSION
     Dates: start: 20100520, end: 20100708
  6. ATELEC [Concomitant]
  7. CALSLOT [Concomitant]
  8. TANATRIL ^TANABE^ [Concomitant]
  9. MICARDIS [Concomitant]
  10. MUCODYNE [Concomitant]
  11. PARIET [Concomitant]
  12. MUCOSTA [Concomitant]
  13. EVIPROSTAT [Concomitant]
  14. ASPIRIN [Concomitant]
  15. PRORENAL [Concomitant]

REACTIONS (5)
  - CHEST DISCOMFORT [None]
  - GLOMERULONEPHRITIS MEMBRANOPROLIFERATIVE [None]
  - NEPHROTIC SYNDROME [None]
  - PLEURAL EFFUSION [None]
  - TUBULOINTERSTITIAL NEPHRITIS [None]
